FAERS Safety Report 24443865 (Version 2)
Quarter: 2024Q4

REPORT INFORMATION
  Report Type: Report from Study
  Country: US (occurrence: US)
  Receive Date: 20241016
  Receipt Date: 20241017
  Transmission Date: 20250115
  Serious: No
  Sender: ROCHE
  Company Number: US-ROCHE-2392775

PATIENT
  Age: 68 Year
  Sex: Female
  Weight: 82.3 kg

DRUGS (6)
  1. RITUXAN [Suspect]
     Active Substance: RITUXIMAB
     Indication: Factor XI deficiency
     Dosage: FOR 4 DOSE,  DATES OF TREATMENT WERE REPORTED AS 30/APR, 07/MAY AND 14/MAY (YEAR UNSPECIFIED), 375 M
     Route: 041
  2. RITUXAN [Suspect]
     Active Substance: RITUXIMAB
     Indication: Thrombotic microangiopathy
     Route: 041
  3. RITUXAN [Suspect]
     Active Substance: RITUXIMAB
     Route: 041
     Dates: start: 20190422, end: 20191030
  4. RITUXAN [Suspect]
     Active Substance: RITUXIMAB
     Route: 041
     Dates: start: 20170731, end: 20180920
  5. RITUXAN [Suspect]
     Active Substance: RITUXIMAB
     Route: 041
     Dates: start: 20170728, end: 20170728
  6. RITUXAN [Suspect]
     Active Substance: RITUXIMAB
     Route: 041
     Dates: start: 20160804, end: 20180728

REACTIONS (2)
  - Off label use [Unknown]
  - No adverse event [Unknown]
